FAERS Safety Report 5919147-3 (Version None)
Quarter: 2008Q3

REPORT INFORMATION
  Report Type: 
  Country: None (occurrence: None)
  Receive Date: 20080909
  Receipt Date: 20070521
  Transmission Date: 20090109
  Serious: Yes (Hospitalization)
  Sender: FDA-Public Use
  Company Number: 163-20785-07020147 (0)

PATIENT
  Age: 70 Year
  Sex: Male

DRUGS (13)
  1. THALOMID [Suspect]
     Indication: MULTIPLE MYELOMA
     Dosage: ORAL
     Route: 048
  2. DEXAMETHASONE TAB [Suspect]
     Indication: MULTIPLE MYELOMA
     Dosage: 40 MG, FOR 4 DAYS DURING TRANSPLANT 2, ORAL
     Route: 048
     Dates: start: 20060804, end: 20060807
  3. MELPHALAN (MELPHALAN) [Suspect]
     Indication: MULTIPLE MYELOMA
     Dosage: 340 MG, SINGLE DOSE DURING TRANSPLANT 2, INTRAVENOUS
     Route: 042
     Dates: start: 20060804, end: 20060807
  4. ENALAPRIL MALEATE [Concomitant]
  5. RANITIDINE [Concomitant]
  6. XALATAN (LATANOPROST) (EYE DROPS) [Concomitant]
  7. DIFLUCAN [Concomitant]
  8. ACYCLOVIR [Concomitant]
  9. DILTIAZEM [Concomitant]
  10. FOLIC ACID [Concomitant]
  11. PROSCAR [Concomitant]
  12. FLOMAX [Concomitant]
  13. LORTAB [Concomitant]

REACTIONS (5)
  - CHOLECYSTITIS [None]
  - PNEUMONIA [None]
  - RENAL FAILURE ACUTE [None]
  - RESPIRATORY FAILURE [None]
  - SEPSIS [None]
